FAERS Safety Report 7427683-6 (Version None)
Quarter: 2011Q1

REPORT INFORMATION
  Report Type: 
  Country: None (occurrence: None)
  Receive Date: 20110328
  Receipt Date: 20110317
  Transmission Date: 20110831
  Serious: Yes (Hospitalization, Other)
  Sender: FDA-Public Use
  Company Number: AEUSA201100033

PATIENT
  Age: 70 Year
  Sex: Male

DRUGS (9)
  1. CALTRATE /00108001/ [Concomitant]
  2. CEREFOLIN NAC [Concomitant]
  3. KLONOPIN [Concomitant]
  4. FINASTERIDE [Concomitant]
  5. GAMUNEX [Suspect]
     Indication: CHRONIC INFLAMMATORY DEMYELINATING POLYRADICULONEUROPATHY
     Dosage: IV
     Route: 042
     Dates: start: 20110103, end: 20110208
  6. VITAMIN D [Concomitant]
  7. LIPITOR [Concomitant]
  8. FLOMAX [Concomitant]
  9. AUGMENTIN /01000301/ [Concomitant]

REACTIONS (1)
  - ANAPHYLACTIC REACTION [None]
